FAERS Safety Report 11086687 (Version 1)
Quarter: 2015Q2

REPORT INFORMATION
  Report Type: Report from Study
  Country: DE (occurrence: DE)
  Receive Date: 20150504
  Receipt Date: 20150504
  Transmission Date: 20150821
  Serious: Yes (Hospitalization)
  Sender: FDA-Public Use
  Company Number: DE-ABBVIE-15P-062-1380991-00

PATIENT
  Sex: Female

DRUGS (1)
  1. DUODOPA [Suspect]
     Active Substance: CARBIDOPA\LEVODOPA
     Indication: PARKINSON^S DISEASE
     Dosage: MD 8.3ML CRD 2.5 ML/H ED 1.2 ML
     Route: 050
     Dates: start: 20120822

REACTIONS (2)
  - Abdominal pain [Not Recovered/Not Resolved]
  - Helicobacter infection [Unknown]
